FAERS Safety Report 8168048 (Version 5)
Quarter: 2014Q2

REPORT INFORMATION
  Report Type: Report from Study
  Country: US (occurrence: US)
  Receive Date: 20111004
  Receipt Date: 20140604
  Transmission Date: 20141212
  Serious: Yes (Hospitalization, Disabling)
  Sender: FDA-Public Use
  Company Number: US-ACTELION-A-US2011-54623

PATIENT
  Age: 61 Year
  Sex: Female

DRUGS (22)
  1. TRACLEER [Suspect]
     Indication: PULMONARY ARTERIAL HYPERTENSION
     Dosage: 125 MG, BID
     Route: 048
     Dates: start: 2004
  2. TRACLEER [Suspect]
     Dosage: 62.5 UNK, UNK
     Route: 048
     Dates: start: 2004, end: 2004
  3. VENTAVIS [Suspect]
     Indication: PULMONARY ARTERIAL HYPERTENSION
     Dosage: 6XDAILY
     Route: 055
     Dates: start: 2008
  4. ADCIRCA [Concomitant]
  5. FLUOXETINE [Concomitant]
     Dosage: 40 MG, QD
     Dates: start: 2001
  6. REQUIP [Concomitant]
     Dosage: 20 MG, QD
     Dates: start: 2000
  7. ALLOPURINOL [Concomitant]
     Dosage: 200 MG, QD
     Dates: start: 2009
  8. SLOW MAG [Concomitant]
     Dosage: 4 TABS DAILY
     Dates: start: 2011
  9. FISH OIL [Concomitant]
     Dosage: 1200 MG, QD
     Dates: start: 2010
  10. IRON [Concomitant]
     Dosage: 65 MG, QD
     Dates: start: 2010
  11. VITAMIN C [Concomitant]
     Dosage: 500 MG, QD
     Dates: start: 2010
  12. CALCIUM [Concomitant]
     Dosage: 600 MG, UNK
     Dates: start: 2010
  13. VITAMIN D [Concomitant]
     Dosage: 2000 U, UNK
     Dates: start: 2010
  14. FLONASE [Concomitant]
     Dosage: 1 SPRAY, QD
     Dates: start: 2010
  15. METOLAZONE [Concomitant]
     Dosage: 5 MG, QD
     Dates: start: 2010
  16. TYVASO [Concomitant]
     Dosage: UNK PUFF, QID
     Dates: start: 201308
  17. COUMADIN [Concomitant]
     Dosage: 7.25 UNK, QD
     Dates: start: 2005
  18. VESICARE [Concomitant]
     Dosage: 10 MG, QD
     Dates: start: 2008
  19. FUROSEMIDE [Concomitant]
     Dosage: 40 MG, QD
     Dates: start: 2002
  20. LOSARTAN [Concomitant]
     Dosage: 50 MG, QD
     Dates: start: 2002
  21. ROPINIROLE [Concomitant]
     Dosage: 4 UNK, QPM
  22. OMEPRAZOLE [Concomitant]
     Dosage: 20 MG, QD
     Dates: start: 2000

REACTIONS (16)
  - Rectal polyp [Unknown]
  - Renal disorder [Recovering/Resolving]
  - Influenza [Recovered/Resolved]
  - Vomiting [Recovered/Resolved]
  - Diarrhoea [Recovered/Resolved]
  - Asthenia [Recovered/Resolved]
  - Dehydration [Recovered/Resolved]
  - Blood creatinine increased [Recovering/Resolving]
  - Swelling [Unknown]
  - Peripheral swelling [Unknown]
  - Weight increased [Recovered/Resolved]
  - Rash [Unknown]
  - Nasal inflammation [Unknown]
  - Epistaxis [Unknown]
  - Musculoskeletal discomfort [Not Recovered/Not Resolved]
  - Eisenmenger^s syndrome [Not Recovered/Not Resolved]
